FAERS Safety Report 8924438 (Version 1)
Quarter: 2012Q4

REPORT INFORMATION
  Report Type: Spontaneous
  Country: US (occurrence: None)
  Receive Date: 20121116
  Receipt Date: 20121116
  Transmission Date: 20130627
  Serious: Yes (Hospitalization, Other)
  Sender: FDA-Public Use
  Company Number: 141741

PATIENT
  Age: 58 Year
  Sex: Male

DRUGS (1)
  1. ALLOPURINOL [Suspect]
     Route: 048

REACTIONS (7)
  - Renal failure acute [None]
  - Gastroduodenitis haemorrhagic [None]
  - Accidental overdose [None]
  - Chest pain [None]
  - Vomiting [None]
  - Musculoskeletal chest pain [None]
  - Renal cyst [None]
